FAERS Safety Report 14509758 (Version 2)
Quarter: 2019Q2

REPORT INFORMATION
  Report Type: Spontaneous
  Country: US (occurrence: US)
  Receive Date: 20180209
  Receipt Date: 20190424
  Transmission Date: 20190711
  Serious: No
  Sender: FDA-Public Use
  Company Number: US-PFIZER INC-2018055347

PATIENT
  Age: 39 Year
  Sex: Male

DRUGS (2)
  1. GABAPENTIN. [Suspect]
     Active Substance: GABAPENTIN
     Dosage: 4250 MG, DAILY (850MG, 5 TIMES A DAY)
     Route: 048
     Dates: start: 2011, end: 2016
  2. GABAPENTIN. [Suspect]
     Active Substance: GABAPENTIN
     Indication: NEUROPATHY PERIPHERAL
     Dosage: 4250 MG, DAILY (850MG, 5 TIMES A DAY)
     Route: 048
     Dates: start: 2009

REACTIONS (4)
  - Somnolence [Unknown]
  - Weight increased [Unknown]
  - Product use in unapproved indication [Unknown]
  - Overdose [Unknown]

NARRATIVE: CASE EVENT DATE: 2009
